FAERS Safety Report 5441958-1 (Version None)
Quarter: 2007Q3

REPORT INFORMATION
  Report Type: 
  Country: None (occurrence: None)
  Receive Date: 20070904
  Receipt Date: 20070831
  Transmission Date: 20080115
  Serious: Yes (Other)
  Sender: FDA-Public Use
  Company Number: B0448065A

PATIENT
  Age: 59 Year
  Sex: Male

DRUGS (14)
  1. VALTREX [Suspect]
     Indication: HERPES ZOSTER
     Dosage: 1000MG PER DAY
     Route: 048
     Dates: start: 20061101, end: 20061103
  2. ADONA (AC-17) [Concomitant]
     Indication: RETINAL HAEMORRHAGE
     Dosage: 90MG PER DAY
     Route: 048
  3. CALTAN [Concomitant]
     Indication: HYPERPHOSPHATURIA
     Dosage: 3G PER DAY
     Route: 048
  4. UNKNOWN NAME [Concomitant]
     Route: 048
  5. ELIETEN [Concomitant]
     Indication: NAUSEA
     Dosage: 15MG PER DAY
     Route: 048
  6. D-ALFA [Concomitant]
     Indication: HYPERPARATHYROIDISM
     Dosage: .5MCG PER DAY
     Route: 048
  7. HALCION [Concomitant]
     Indication: SLEEP DISORDER
     Dosage: .25MG PER DAY
     Route: 048
  8. UNKNOWN NAME [Concomitant]
     Indication: NAUSEA
     Route: 048
  9. NORVASC [Concomitant]
     Indication: HYPERTENSION
     Dosage: 10MG PER DAY
     Route: 048
  10. LOSARTAN POTASSIUM [Concomitant]
     Indication: HYPERTENSION
     Dosage: 100MG PER DAY
     Route: 048
  11. UNKNOWN NAME [Concomitant]
     Indication: REFLUX OESOPHAGITIS
     Dosage: 20MG PER DAY
     Route: 048
  12. ESPO [Concomitant]
     Indication: NEPHROGENIC ANAEMIA
     Dosage: 31U3 PER DAY
     Route: 042
  13. VOLTAREN [Concomitant]
     Indication: HERPES ZOSTER
     Route: 054
     Dates: start: 20061101, end: 20061103
  14. UNKNOWN DRUG [Concomitant]
     Route: 048

REACTIONS (6)
  - ALTERED STATE OF CONSCIOUSNESS [None]
  - AMNESIA [None]
  - BLOOD PRESSURE INCREASED [None]
  - DISORIENTATION [None]
  - MASKED FACIES [None]
  - NAUSEA [None]
